FAERS Safety Report 9813110 (Version 1)
Quarter: 2014Q1

REPORT INFORMATION
  Report Type: Spontaneous
  Country: US (occurrence: None)
  Receive Date: 20140110
  Receipt Date: 20140110
  Transmission Date: 20141002
  Serious: No
  Sender: FDA-Public Use
  Company Number: None

PATIENT
  Age: 70 Year
  Sex: Male
  Weight: 86.18 kg

DRUGS (1)
  1. ANASTROZOLE [Suspect]

REACTIONS (7)
  - Arthralgia [None]
  - Abdominal pain [None]
  - Headache [None]
  - Asthenia [None]
  - Gait disturbance [None]
  - Hyperhidrosis [None]
  - Chills [None]
